FAERS Safety Report 6473443-2 (Version None)
Quarter: 2009Q4

REPORT INFORMATION
  Report Type: 
  Country: None (occurrence: None)
  Receive Date: 20091204
  Receipt Date: 20090615
  Transmission Date: 20100525
  Serious: Yes (Death)
  Sender: FDA-Public Use
  Company Number: IN-ELI_LILLY_AND_COMPANY-IN200901000617

PATIENT
  Sex: Male

DRUGS (3)
  1. ALIMTA [Suspect]
     Indication: NON-SMALL CELL LUNG CANCER
     Dosage: UNK, CYCLE ONE
     Route: 042
  2. FOLIC ACID [Concomitant]
     Indication: SUPPLEMENTATION THERAPY
  3. VITAMIN B-12 [Concomitant]
     Indication: SUPPLEMENTATION THERAPY

REACTIONS (1)
  - CARDIAC DISORDER [None]
